FAERS Safety Report 6447937-X (Version None)
Quarter: 2009Q4

REPORT INFORMATION
  Report Type: 
  Country: None (occurrence: None)
  Receive Date: 20091120
  Receipt Date: 20091119
  Transmission Date: 20100525
  Serious: Yes (Life-Threatening, Hospitalization)
  Sender: FDA-Public Use
  Company Number: TR-JNJFOC-20091101723

PATIENT
  Age: 16 Year
  Sex: Male

DRUGS (2)
  1. CONCERTA [Suspect]
     Dosage: 15 TABLETS OF 36 MG
     Route: 048
  2. CONCERTA [Suspect]
     Indication: ATTENTION DEFICIT/HYPERACTIVITY DISORDER
     Route: 048

REACTIONS (6)
  - ARRHYTHMIA [None]
  - DIZZINESS [None]
  - NAUSEA [None]
  - OVERDOSE [None]
  - TACHYCARDIA [None]
  - VOMITING [None]
